FAERS Safety Report 23167338 (Version 1)
Quarter: 2023Q4

REPORT INFORMATION
  Report Type: Spontaneous
  Country: US (occurrence: US)
  Receive Date: 20231109
  Receipt Date: 20231109
  Transmission Date: 20240109
  Serious: No
  Sender: FDA-Public Use
  Company Number: US-WW-2023-00948-LUN

PATIENT
  Sex: Female

DRUGS (1)
  1. ESZOPICLONE [Suspect]
     Active Substance: ESZOPICLONE
     Dosage: 2 MG

REACTIONS (1)
  - Illness [Unknown]
